FAERS Safety Report 18321012 (Version 1)
Quarter: 2020Q3

REPORT INFORMATION
  Report Type: Spontaneous
  Country: US (occurrence: US)
  Receive Date: 20200929
  Receipt Date: 20200929
  Transmission Date: 20201103
  Serious: No
  Sender: FDA-Public Use
  Company Number: US-BION-008742

PATIENT
  Sex: Male
  Weight: 62.6 kg

DRUGS (1)
  1. IMODIUM A?D [Suspect]
     Active Substance: LOPERAMIDE HYDROCHLORIDE
     Indication: DUMPING SYNDROME
     Dosage: 6?8 TABLETS IN ONE SITTING/ALL AT ONCE
     Route: 048
     Dates: start: 20200401, end: 20200514

REACTIONS (2)
  - Product use in unapproved indication [Not Recovered/Not Resolved]
  - Incorrect dose administered [Not Recovered/Not Resolved]
